FAERS Safety Report 5910358-X (Version None)
Quarter: 2008Q4

REPORT INFORMATION
  Report Type: 
  Country: None (occurrence: None)
  Receive Date: 20081007
  Receipt Date: 20071212
  Transmission Date: 20090506
  Serious: No
  Sender: FDA-Public Use
  Company Number: US-ASTRAZENECA-2007UW28340

PATIENT
  Age: 65 Year
  Sex: Female
  Weight: 86.2 kg

DRUGS (3)
  1. ARIMIDEX [Suspect]
     Indication: BREAST CANCER
     Route: 048
  2. VITAMINS [Concomitant]
  3. HERBS [Concomitant]

REACTIONS (4)
  - ARTHRALGIA [None]
  - DYSPNOEA [None]
  - INFLUENZA LIKE ILLNESS [None]
  - MUSCULOSKELETAL CHEST PAIN [None]
